FAERS Safety Report 8803909 (Version 3)
Quarter: 2014Q4

REPORT INFORMATION
  Report Type: Spontaneous
  Country: FR (occurrence: FR)
  Receive Date: 20120924
  Receipt Date: 20141223
  Transmission Date: 20150529
  Serious: Yes (Other)
  Sender: FDA-Public Use
  Company Number: PHHY2012FR082492

PATIENT
  Age: 53 Year
  Sex: Male

DRUGS (3)
  1. TASIGNA [Suspect]
     Active Substance: NILOTINIB
     Indication: CHRONIC MYELOID LEUKAEMIA
     Dosage: 2 DF, BID
     Route: 048
     Dates: start: 201006, end: 201108
  2. LYRICA [Concomitant]
     Active Substance: PREGABALIN
     Indication: PRODUCT USED FOR UNKNOWN INDICATION
     Dosage: 1 DF, BID
     Route: 048
     Dates: start: 20120208
  3. TASIGNA [Suspect]
     Active Substance: NILOTINIB
     Dosage: UNK
     Route: 048
     Dates: start: 20111101, end: 20121217

REACTIONS (7)
  - Neuralgia [Not Recovered/Not Resolved]
  - Intermittent claudication [Unknown]
  - Polymyositis [Unknown]
  - Pain in extremity [Unknown]
  - Extremity contracture [Unknown]
  - Dysaesthesia [Unknown]
  - Fibrosis [Unknown]

NARRATIVE: CASE EVENT DATE: 201011
